FAERS Safety Report 13276463 (Version 1)
Quarter: 2017Q1

REPORT INFORMATION
  Report Type: Report from Study
  Country: None (occurrence: US)
  Receive Date: 20170228
  Receipt Date: 20170228
  Transmission Date: 20170428
  Serious: Yes (Other)
  Sender: FDA-Public Use
  Company Number: US-ABBVIE-17K-163-1835255-00

PATIENT
  Age: 68 Year
  Sex: Female
  Weight: 74.91 kg

DRUGS (9)
  1. PULMICORT TURBUHALER [Concomitant]
     Active Substance: BUDESONIDE
     Indication: ASTHMA
  2. ASPIRIN. [Concomitant]
     Active Substance: ASPIRIN
     Indication: CARDIOVASCULAR DISORDER
  3. ATORVASTATIN [Concomitant]
     Active Substance: ATORVASTATIN
     Indication: BLOOD CHOLESTEROL INCREASED
  4. HUMIRA [Suspect]
     Active Substance: ADALIMUMAB
     Indication: RHEUMATOID ARTHRITIS
     Route: 058
     Dates: end: 2016
  5. HUMIRA [Suspect]
     Active Substance: ADALIMUMAB
     Route: 058
     Dates: start: 2016, end: 2016
  6. FLUTICASONE. [Concomitant]
     Active Substance: FLUTICASONE
     Indication: ASTHMA
  7. HUMIRA [Suspect]
     Active Substance: ADALIMUMAB
     Route: 058
     Dates: start: 2016
  8. AMLODIPINE [Concomitant]
     Active Substance: AMLODIPINE BESYLATE
     Indication: HYPERTENSION
  9. RANITIDINE. [Concomitant]
     Active Substance: RANITIDINE
     Indication: GASTROOESOPHAGEAL REFLUX DISEASE

REACTIONS (1)
  - Amblyopia [Recovered/Resolved]

NARRATIVE: CASE EVENT DATE: 201604
